FAERS Safety Report 5297403-2 (Version None)
Quarter: 2007Q2

REPORT INFORMATION
  Report Type: 
  Country: None (occurrence: None)
  Receive Date: 20070410
  Receipt Date: 20070410
  Transmission Date: 20071010
  Serious: No
  Sender: FDA-Public Use
  Company Number: None

PATIENT

DRUGS (3)
  1. ATIVAN [Suspect]
     Dosage: INJECTABLE
  2. HALOPERIDOL [Suspect]
     Dosage: INJECTABLE
  3. HYDROMORPHONE HCL [Suspect]

REACTIONS (17)
  - ACUTE RESPIRATORY DISTRESS SYNDROME [None]
  - ARRHYTHMIA [None]
  - BLOOD PRESSURE DECREASED [None]
  - BRADYCARDIA [None]
  - CARDIO-RESPIRATORY ARREST [None]
  - CONFUSIONAL STATE [None]
  - DIALYSIS [None]
  - DISORIENTATION [None]
  - ELECTROMECHANICAL DISSOCIATION [None]
  - HEART RATE DECREASED [None]
  - INCORRECT DOSE ADMINISTERED [None]
  - LOSS OF CONSCIOUSNESS [None]
  - MEDICATION ERROR [None]
  - MYOCARDIAL INFARCTION [None]
  - OXYGEN SATURATION DECREASED [None]
  - PULMONARY EMBOLISM [None]
  - RENAL FAILURE ACUTE [None]
